FAERS Safety Report 7282808-0 (Version None)
Quarter: 2011Q1

REPORT INFORMATION
  Report Type: 
  Country: None (occurrence: None)
  Receive Date: 20110209
  Receipt Date: 20101220
  Transmission Date: 20110831
  Serious: Yes (Hospitalization)
  Sender: FDA-Public Use
  Company Number: US-BAYER-201019691NA

PATIENT
  Sex: Female
  Weight: 78.182 kg

DRUGS (8)
  1. YASMIN [Suspect]
     Indication: PREMENSTRUAL SYNDROME
  2. OCELLA [Suspect]
     Indication: PROPHYLAXIS
     Route: 048
  3. IBUPROFEN [Concomitant]
     Indication: DEEP VEIN THROMBOSIS
  4. YAZ [Suspect]
     Indication: PROPHYLAXIS
     Route: 048
     Dates: start: 20070301, end: 20071127
  5. YASMIN [Suspect]
     Indication: PROPHYLAXIS
     Route: 048
  6. DAYPRO [Concomitant]
  7. OCELLA [Suspect]
     Indication: DEEP VEIN THROMBOSIS
  8. YAZ [Suspect]
     Indication: PREMENSTRUAL SYNDROME

REACTIONS (2)
  - DEEP VEIN THROMBOSIS [None]
  - INJURY [None]
